FAERS Safety Report 6907356-6 (Version None)
Quarter: 2010Q3

REPORT INFORMATION
  Report Type: 
  Country: None (occurrence: None)
  Receive Date: 20100802
  Receipt Date: 20100721
  Transmission Date: 20110219
  Serious: Yes (Hospitalization)
  Sender: FDA-Public Use
  Company Number: 2010-1926

PATIENT
  Age: 76 Year
  Sex: Male

DRUGS (1)
  1. APO-GO AMPOULES (APO-GO) (APOMORPHINE HYDROCHLORIDE) (APOMORPHINE HYDR [Suspect]
     Indication: PRODUCT USED FOR UNKNOWN INDICATION
     Dosage: CONTINUOUS FROM 08:30 TO 21:00 (CONTNUOUS FROM 08:30 TO 21:00),SUBCUTANEOUS
     Route: 058
     Dates: start: 20080826

REACTIONS (1)
  - DYSPHAGIA [None]
